FAERS Safety Report 23386642 (Version 2)
Quarter: 2024Q1

REPORT INFORMATION
  Report Type: Spontaneous
  Country: AT (occurrence: AT)
  Receive Date: 20240110
  Receipt Date: 20240205
  Transmission Date: 20240410
  Serious: Yes (Hospitalization, Other)
  Sender: FDA-Public Use
  Company Number: AT-ROCHE-2520357

PATIENT
  Age: 54 Year
  Sex: Female
  Weight: 75 kg

DRUGS (83)
  1. ABRAXANE [Suspect]
     Active Substance: PACLITAXEL
     Indication: HER2 positive breast cancer
     Dosage: 177.17 MG
     Route: 042
     Dates: start: 20180416
  2. CAPECITABINE [Suspect]
     Active Substance: CAPECITABINE
     Indication: HER2 positive breast cancer
     Dosage: 500MG (OTHER)
     Route: 048
     Dates: start: 20191126, end: 20191218
  3. CAPECITABINE [Suspect]
     Active Substance: CAPECITABINE
     Dosage: 500MG (OTHER)
     Route: 048
     Dates: start: 20191219
  4. CYCLOPHOSPHAMIDE [Suspect]
     Active Substance: CYCLOPHOSPHAMIDE
     Dosage: 2.5 MG
     Route: 048
  5. CYCLOPHOSPHAMIDE [Suspect]
     Active Substance: CYCLOPHOSPHAMIDE
     Indication: HER2 positive breast cancer
     Dosage: MOST RECENT DOSE PRIOR TO AE 09/MAR/2020
     Route: 048
     Dates: start: 20200219, end: 20200309
  6. CYTOXAN [Suspect]
     Active Substance: CYCLOPHOSPHAMIDE
     Indication: HER2 positive breast cancer
     Dosage: MOST RECENT DOSE PRIOR TO AE 09/MAR/2020
     Route: 048
     Dates: start: 20200219
  7. HERCEPTIN [Suspect]
     Active Substance: TRASTUZUMAB
     Dosage: 1440.000MG TIW
     Route: 042
     Dates: start: 20190119, end: 20200129
  8. HERCEPTIN [Suspect]
     Active Substance: TRASTUZUMAB
     Dosage: 372.000MG TIW
     Route: 042
     Dates: start: 20180626, end: 20181010
  9. HERCEPTIN [Suspect]
     Active Substance: TRASTUZUMAB
     Indication: HER2 positive breast cancer
     Dosage: 378.000MG TIW
     Route: 042
     Dates: start: 20181102, end: 20181123
  10. HERCEPTIN [Suspect]
     Active Substance: TRASTUZUMAB
     Dosage: 378.000MG TIW
     Route: 042
     Dates: start: 20181214, end: 20190109
  11. HERCEPTIN [Suspect]
     Active Substance: TRASTUZUMAB
     Dosage: 384.000MG TIW
     Route: 042
     Dates: start: 20180515, end: 20180515
  12. HERCEPTIN [Suspect]
     Active Substance: TRASTUZUMAB
     Dosage: 408.000MG TIW
     Route: 042
     Dates: start: 20180423, end: 20180423
  13. HERCEPTIN [Suspect]
     Active Substance: TRASTUZUMAB
     Dosage: 600.000MG TIW
     Route: 042
     Dates: start: 20191011, end: 20191025
  14. HERCEPTIN [Suspect]
     Active Substance: TRASTUZUMAB
     Dosage: MOST RECENT DOSE PRIOR TO THE EVENT: 11/OCT/2019, 19/FEB/2020.
     Route: 042
     Dates: start: 20180328, end: 20180328
  15. KADCYLA [Suspect]
     Active Substance: ADO-TRASTUZUMAB EMTANSINE
     Indication: HER2 positive breast cancer
     Dosage: DOSE ON 17/MAY/2019MOST RECENT DOSE PRIOR TO THE EVENT: 11/MAR/2020
     Route: 042
     Dates: start: 20210228
  16. KADCYLA [Suspect]
     Active Substance: ADO-TRASTUZUMAB EMTANSINE
     Dosage: DOSE ON MOST RECENT DOSE PRIOR TO THE EVENT: 28/JUN/2019
     Route: 042
     Dates: start: 20190131, end: 20190517
  17. METHOTREXATE [Suspect]
     Active Substance: METHOTREXATE
     Indication: HER2 positive breast cancer
     Dosage: 2.5 MG, 0.5 WEEK (MOST RECENT DOSE PRIOR TO AE 09/MAR/2020)
     Route: 048
     Dates: start: 20200219, end: 20200309
  18. PACLITAXEL [Suspect]
     Active Substance: PACLITAXEL
     Dosage: 170.350MG
     Route: 042
     Dates: start: 20180626, end: 20180718
  19. PACLITAXEL [Suspect]
     Active Substance: PACLITAXEL
     Dosage: 171.510MG
     Route: 042
     Dates: start: 20181102, end: 20181123
  20. PACLITAXEL [Suspect]
     Active Substance: PACLITAXEL
     Dosage: 171.510MG
     Route: 042
     Dates: start: 20181207, end: 20181221
  21. PACLITAXEL [Suspect]
     Active Substance: PACLITAXEL
     Dosage: 171.510MG
     Route: 042
     Dates: start: 20190109, end: 20190109
  22. PACLITAXEL [Suspect]
     Active Substance: PACLITAXEL
     Dosage: 172.670MG
     Route: 042
     Dates: start: 20180515, end: 20180515
  23. PACLITAXEL [Suspect]
     Active Substance: PACLITAXEL
     Dosage: 172.670MG
     Route: 042
     Dates: start: 20180605, end: 20180605
  24. PACLITAXEL [Suspect]
     Active Substance: PACLITAXEL
     Dosage: 172.670MG
     Route: 042
     Dates: start: 20190102, end: 20190102
  25. PACLITAXEL [Suspect]
     Active Substance: PACLITAXEL
     Dosage: 172.670MG
     Route: 042
     Dates: start: 20190116, end: 20190116
  26. PACLITAXEL [Suspect]
     Active Substance: PACLITAXEL
     Indication: HER2 positive breast cancer
     Dosage: 177.170MG
     Route: 042
     Dates: start: 20180522, end: 20180529
  27. PACLITAXEL [Suspect]
     Active Substance: PACLITAXEL
     Dosage: 177.170MG
     Route: 042
     Dates: start: 20180612, end: 20180619
  28. PACLITAXEL [Suspect]
     Active Substance: PACLITAXEL
     Dosage: FREQUENCY: WEEKLY MOST RECENT DOSE PRIOR TO THE EVENT: 26/JUN/2018
     Route: 042
     Dates: start: 20180416, end: 20180508
  29. NAVELBINE [Suspect]
     Active Substance: VINORELBINE TARTRATE
     Indication: HER2 positive breast cancer
     Dosage: 50 MG (RECENT DOSE: 28/OCT/2019)
     Route: 048
     Dates: start: 20191011, end: 20191025
  30. NERATINIB [Suspect]
     Active Substance: NERATINIB
     Indication: HER2 positive breast cancer
     Dosage: 1440 MG,QD
     Route: 048
     Dates: start: 20200108, end: 20200118
  31. NERATINIB [Suspect]
     Active Substance: NERATINIB
     Dosage: 1440 MG,QD
     Route: 048
     Dates: start: 20200119, end: 20200129
  32. ONTRUZANT [Suspect]
     Active Substance: TRASTUZUMAB-DTTB
     Dosage: 1440 MG, TIW
     Route: 042
     Dates: start: 20190119, end: 20200129
  33. ONTRUZANT [Suspect]
     Active Substance: TRASTUZUMAB-DTTB
     Dosage: 372 MG
     Route: 042
     Dates: start: 20180626, end: 20181010
  34. ONTRUZANT [Suspect]
     Active Substance: TRASTUZUMAB-DTTB
     Dosage: 378 MG
     Route: 042
     Dates: start: 20181102, end: 20181123
  35. ONTRUZANT [Suspect]
     Active Substance: TRASTUZUMAB-DTTB
     Dosage: 378 MG, TIW
     Route: 042
     Dates: start: 20181123, end: 20181123
  36. ONTRUZANT [Suspect]
     Active Substance: TRASTUZUMAB-DTTB
     Dosage: 378 MG, TIW
     Route: 042
     Dates: start: 20181214, end: 20190109
  37. ONTRUZANT [Suspect]
     Active Substance: TRASTUZUMAB-DTTB
     Dosage: 384 MG, TIW
     Route: 042
     Dates: start: 20180515, end: 20180515
  38. ONTRUZANT [Suspect]
     Active Substance: TRASTUZUMAB-DTTB
     Dosage: 408 MG, TIW
     Route: 042
     Dates: start: 20180423, end: 20180423
  39. ONTRUZANT [Suspect]
     Active Substance: TRASTUZUMAB-DTTB
     Dosage: 600 MG, TIW
     Route: 042
     Dates: start: 20191011, end: 20191025
  40. ONTRUZANT [Suspect]
     Active Substance: TRASTUZUMAB-DTTB
     Indication: HER2 positive breast cancer
     Dosage: 600 MG, TIW (MOST RECENT DOSE PRIOR TO THE EVENT: 11/OCT/2019)
     Route: 042
     Dates: start: 20180328, end: 20180328
  41. PACLITAXEL [Suspect]
     Active Substance: PACLITAXEL
     Indication: HER2 positive breast cancer
     Dosage: 147.76 MG, QW
     Route: 042
     Dates: start: 20180328, end: 20180409
  42. PACLITAXEL [Suspect]
     Active Substance: PACLITAXEL
     Dosage: 147.76 MG, QW
     Route: 042
     Dates: start: 20180522, end: 20180529
  43. PACLITAXEL [Suspect]
     Active Substance: PACLITAXEL
     Dosage: 170.35 MG, QW
     Route: 042
     Dates: start: 20180626, end: 20180718
  44. PACLITAXEL [Suspect]
     Active Substance: PACLITAXEL
     Dosage: 171.51 MG, QW
     Route: 042
     Dates: start: 20181207, end: 20181221
  45. PACLITAXEL [Suspect]
     Active Substance: PACLITAXEL
     Dosage: 171.51 MG, QW
     Route: 042
     Dates: start: 20190109, end: 20190109
  46. PACLITAXEL [Suspect]
     Active Substance: PACLITAXEL
     Dosage: 172.67 MG, QW
     Route: 042
     Dates: start: 20180515, end: 20180515
  47. PACLITAXEL [Suspect]
     Active Substance: PACLITAXEL
     Dosage: 172.67 MG, QW
     Route: 042
     Dates: start: 20180605, end: 20190515
  48. PACLITAXEL [Suspect]
     Active Substance: PACLITAXEL
     Dosage: 172.67 MG, QW
     Route: 042
     Dates: start: 20190102, end: 20190515
  49. PACLITAXEL [Suspect]
     Active Substance: PACLITAXEL
     Dosage: 172.67 MG, QW
     Route: 042
     Dates: start: 20190116, end: 20190116
  50. PACLITAXEL [Suspect]
     Active Substance: PACLITAXEL
     Dosage: 177.17 MG, QW
     Route: 042
     Dates: start: 20180416, end: 20180508
  51. PACLITAXEL [Suspect]
     Active Substance: PACLITAXEL
     Dosage: 177.17 MG, QW
     Route: 042
     Dates: start: 20180612, end: 20180612
  52. PACLITAXEL [Suspect]
     Active Substance: PACLITAXEL
     Dosage: 177.51 MG, QW
     Route: 042
     Dates: start: 20181102, end: 20181123
  53. PERJETA [Suspect]
     Active Substance: PERTUZUMAB
     Indication: HER2 positive breast cancer
     Dosage: UNK
     Route: 065
     Dates: start: 20200224, end: 20200410
  54. PERTUZUMAB [Suspect]
     Active Substance: PERTUZUMAB
     Dosage: 420 MG, 3 WEEKS
     Route: 042
     Dates: start: 20180423, end: 20180423
  55. PERTUZUMAB [Suspect]
     Active Substance: PERTUZUMAB
     Dosage: 420 MG, TIW
     Route: 042
     Dates: start: 20181214, end: 20190109
  56. PERTUZUMAB [Suspect]
     Active Substance: PERTUZUMAB
     Indication: HER2 positive breast cancer
     Dosage: 840 MG, TIW (MOST RECENT DOSE PRIOR TO THE EVENT: 14/DEC/2018, 11/OCT/2019)
     Route: 042
     Dates: start: 20180328, end: 20180328
  57. TAXOL [Suspect]
     Active Substance: PACLITAXEL
     Indication: HER2 positive breast cancer
     Dosage: 147.76 MG
     Route: 042
     Dates: start: 20180328, end: 20180409
  58. TAXOL [Suspect]
     Active Substance: PACLITAXEL
     Dosage: 177.17 MG
     Route: 042
     Dates: start: 20180416
  59. ADO-TRASTUZUMAB EMTANSINE [Suspect]
     Active Substance: ADO-TRASTUZUMAB EMTANSINE
     Indication: HER2 positive breast cancer
     Dosage: 230.4 MG
     Route: 042
     Dates: start: 20190131
  60. ADO-TRASTUZUMAB EMTANSINE [Suspect]
     Active Substance: ADO-TRASTUZUMAB EMTANSINE
     Dosage: 230.4 MG, Q3W (2.5 MG, 0.5 WEEK (MOST RECENT DOSE PRIOR TO AE 09/MAR/2020)
     Route: 042
     Dates: start: 20210228
  61. ADO-TRASTUZUMAB EMTANSINE [Suspect]
     Active Substance: ADO-TRASTUZUMAB EMTANSINE
     Dosage: DOSE ON 17/MAY/2019MOST RECENT DOSE PRIOR TO THE EVENT: 28/JUN/2019
     Route: 042
     Dates: start: 20190131, end: 20190517
  62. TREXALL [Suspect]
     Active Substance: METHOTREXATE SODIUM
     Indication: HER2 positive breast cancer
     Dosage: MOST RECENT DOSE PRIOR TO AE 09/MAR/2020
     Route: 048
     Dates: start: 20200219
  63. VINORELBINE [Suspect]
     Active Substance: VINORELBINE TARTRATE
     Indication: HER2 positive breast cancer
     Dosage: 50 MG (RECENT DOSE: 28 OCT 2019)
     Route: 048
     Dates: start: 20191011, end: 20191025
  64. XELODA [Suspect]
     Active Substance: CAPECITABINE
     Dosage: OTHER
     Route: 048
     Dates: start: 20191219
  65. XELODA [Suspect]
     Active Substance: CAPECITABINE
     Indication: HER2 positive breast cancer
     Dosage: OTHER MOST RECENT DOSE PRIOR TO THE EVENT: 19/DEC/2019
     Route: 048
     Dates: start: 20191126, end: 20191218
  66. DEXPANTHENOL\HYALURONATE SODIUM [Concomitant]
     Active Substance: DEXPANTHENOL\HYALURONATE SODIUM
     Indication: Conjunctivitis
     Dosage: UNK
     Route: 065
     Dates: start: 20180619
  67. DEXPANTHENOL [Concomitant]
     Active Substance: DEXPANTHENOL
     Indication: Onycholysis
     Dosage: UNK (UNK)
     Route: 065
     Dates: start: 20180725
  68. DEXPANTHENOL [Concomitant]
     Active Substance: DEXPANTHENOL
     Indication: Conjunctivitis
     Route: 065
     Dates: start: 20180619
  69. CALCIUM CARBONATE\CHOLECALCIFEROL [Concomitant]
     Active Substance: CALCIUM CARBONATE\CHOLECALCIFEROL
     Indication: Product used for unknown indication
     Dosage: UNK (ONGOING = CHECKED)
     Route: 065
     Dates: start: 20190425
  70. DEXAMETHASONE [Concomitant]
     Active Substance: DEXAMETHASONE
     Indication: Product used for unknown indication
     Dosage: UNK
     Route: 065
     Dates: start: 20190628, end: 20190830
  71. LOPERAMIDE HYDROCHLORIDE [Concomitant]
     Active Substance: LOPERAMIDE HYDROCHLORIDE
     Indication: Product used for unknown indication
     Dosage: UNK (UNK)
     Route: 065
     Dates: start: 20200108, end: 20200113
  72. HYDROMORPHONE HYDROCHLORIDE [Concomitant]
     Active Substance: HYDROMORPHONE HYDROCHLORIDE
     Indication: Product used for unknown indication
     Dosage: UNK (UNK)
     Route: 065
     Dates: start: 20200228, end: 20200410
  73. HYDROMORPHONE HYDROCHLORIDE [Concomitant]
     Active Substance: HYDROMORPHONE HYDROCHLORIDE
     Dosage: UNK (UNK)
     Route: 065
     Dates: start: 20200228, end: 20200311
  74. HYDROMORPHONE HYDROCHLORIDE [Concomitant]
     Active Substance: HYDROMORPHONE HYDROCHLORIDE
     Dosage: UNK (UNK)
     Route: 065
     Dates: start: 20200311, end: 20200410
  75. HYDROMORPHONE HYDROCHLORIDE [Concomitant]
     Active Substance: HYDROMORPHONE HYDROCHLORIDE
     Indication: Product used for unknown indication
     Dosage: UNK
     Route: 065
  76. KYTRIL [Concomitant]
     Active Substance: GRANISETRON HYDROCHLORIDE
     Indication: Product used for unknown indication
     Dosage: UNK (ONGOING = NOT CHECKED)
     Route: 065
     Dates: start: 20190628, end: 20190830
  77. NOVALGINA [Concomitant]
     Active Substance: ACETAMINOPHEN\CAFFEINE
     Dosage: UNK
     Route: 065
     Dates: start: 20200224, end: 20200410
  78. NOVALGINA [Concomitant]
     Active Substance: ACETAMINOPHEN\CAFFEINE
     Indication: Product used for unknown indication
     Dosage: UNK (UNK)
     Route: 065
     Dates: start: 20200224, end: 20200410
  79. OCTENIDINE HYDROCHLORIDE [Concomitant]
     Active Substance: OCTENIDINE HYDROCHLORIDE
     Indication: Onycholysis
     Dosage: UNK
     Route: 065
     Dates: start: 20180725
  80. OCTENIDINE\PHENOXYETHANOL [Concomitant]
     Active Substance: OCTENIDINE\PHENOXYETHANOL
     Indication: Onycholysis
     Dosage: UNK (UNK)
     Route: 065
     Dates: start: 20180725
  81. PANTOPRAZOLE SODIUM [Concomitant]
     Active Substance: PANTOPRAZOLE SODIUM
     Indication: Product used for unknown indication
     Dosage: ONGOING = CHECKED
     Route: 065
     Dates: start: 20191011
  82. XGEVA [Concomitant]
     Active Substance: DENOSUMAB
     Indication: Product used for unknown indication
     Dosage: UNK (UNK)
     Route: 065
     Dates: start: 20191219, end: 20200410
  83. ZOFRAN [Concomitant]
     Active Substance: ONDANSETRON HYDROCHLORIDE
     Indication: Product used for unknown indication
     Dosage: UNK
     Route: 065

REACTIONS (11)
  - Intentional product use issue [Unknown]
  - Dyspnoea [Recovered/Resolved]
  - Febrile neutropenia [Recovered/Resolved]
  - Overdose [Unknown]
  - Off label use [Unknown]
  - Tumour pain [Recovered/Resolved]
  - Breast cancer metastatic [Recovering/Resolving]
  - Pain of skin [Recovered/Resolved]
  - C-reactive protein increased [Recovered/Resolved]
  - Diarrhoea [Recovered/Resolved]
  - Stomatitis [Recovered/Resolved]

NARRATIVE: CASE EVENT DATE: 20190920
